FAERS Safety Report 6872684-X (Version None)
Quarter: 2010Q3

REPORT INFORMATION
  Report Type: 
  Country: None (occurrence: None)
  Receive Date: 20100723
  Receipt Date: 20081028
  Transmission Date: 20110219
  Serious: No
  Sender: FDA-Public Use
  Company Number: US-PFIZER INC-2008091211

PATIENT
  Sex: Female
  Weight: 59.1 kg

DRUGS (3)
  1. CHANTIX [Suspect]
     Indication: SMOKING CESSATION THERAPY
     Dosage: 0.5 MG, 2X/DAY
     Route: 048
     Dates: start: 20080501, end: 20081001
  2. VITAMINS [Concomitant]
  3. SPIRULINA [Concomitant]

REACTIONS (4)
  - ABDOMINAL PAIN UPPER [None]
  - MALAISE [None]
  - NAUSEA [None]
  - VOMITING [None]
